FAERS Safety Report 7428008-2 (Version None)
Quarter: 2011Q2

REPORT INFORMATION
  Report Type: 
  Country: None (occurrence: None)
  Receive Date: 20110412
  Receipt Date: 20110406
  Transmission Date: 20111010
  Serious: Yes (Other)
  Sender: FDA-Public Use
  Company Number: 8037321

PATIENT
  Sex: Female
  Weight: 7.5 kg

DRUGS (6)
  1. KEPPRA [Suspect]
     Dosage: (1000 MG, DOSE FREQ.: DAILY TRANSPLACENTAL)
     Route: 064
     Dates: start: 20070905
  2. FOLIC ACID [Concomitant]
  3. CRANBERRY /01512301/ [Concomitant]
  4. FISH OIL [Concomitant]
  5. KEPPRA [Suspect]
     Dosage: (1000 MG, DOSE FREQ.: TRANSMAMMARY)
     Route: 063
  6. PRENATAL VITAMINS /01549301/ [Concomitant]

REACTIONS (3)
  - MATERNAL DRUGS AFFECTING FOETUS [None]
  - DRUG EXPOSURE VIA BREAST MILK [None]
  - FAILURE TO THRIVE [None]
